FAERS Safety Report 9620858 (Version 3)
Quarter: 2013Q4

REPORT INFORMATION
  Report Type: Spontaneous
  Country: US (occurrence: US)
  Receive Date: 20131015
  Receipt Date: 20131228
  Transmission Date: 20140711
  Serious: No
  Sender: FDA-Public Use
  Company Number: US-TEVA-437849USA

PATIENT
  Sex: Female

DRUGS (1)
  1. PARAGARD 380A [Suspect]
     Indication: CONTRACEPTION
     Route: 015
     Dates: start: 199405

REACTIONS (5)
  - Complication of device removal [Not Recovered/Not Resolved]
  - Product quality issue [Not Recovered/Not Resolved]
  - Stress [Unknown]
  - Asthenia [Not Recovered/Not Resolved]
  - Polymenorrhoea [Not Recovered/Not Resolved]
